FAERS Safety Report 10896638 (Version 1)
Quarter: 2015Q1

REPORT INFORMATION
  Report Type: Spontaneous
  Country: CN (occurrence: None)
  Receive Date: 20150302
  Receipt Date: 20150302
  Transmission Date: 20150721
  Serious: Yes (Other)
  Sender: FDA-Public Use
  Company Number: CN2015GSK024851

PATIENT
  Age: 20 Year
  Sex: Male

DRUGS (1)
  1. LAMIVUDINE (LAMIVUDINE) [Suspect]
     Active Substance: LAMIVUDINE
     Indication: HEPATITIS B

REACTIONS (4)
  - Neuromyopathy [None]
  - Mitochondrial cytopathy [None]
  - Mitochondrial DNA depletion [None]
  - Nerve injury [None]
